FAERS Safety Report 6927956-7 (Version None)
Quarter: 2010Q3

REPORT INFORMATION
  Report Type: 
  Country: None (occurrence: None)
  Receive Date: 20100817
  Receipt Date: 20100809
  Transmission Date: 20110219
  Serious: Yes (Hospitalization, Other)
  Sender: FDA-Public Use
  Company Number: US-ELI_LILLY_AND_COMPANY-US201002003363

PATIENT
  Sex: Female
  Weight: 92.517 kg

DRUGS (3)
  1. BYETTA [Suspect]
     Dosage: UNK, UNK
     Dates: start: 20090623, end: 20090701
  2. ORAL ANTIDIABETICS [Concomitant]
  3. DIURETICS [Concomitant]

REACTIONS (11)
  - ASTHENIA [None]
  - BARRETT'S OESOPHAGUS [None]
  - FALL [None]
  - HEADACHE [None]
  - INJURY [None]
  - NEUROPATHY PERIPHERAL [None]
  - OEDEMA PERIPHERAL [None]
  - PAIN IN EXTREMITY [None]
  - RENAL DISORDER [None]
  - RENAL FAILURE ACUTE [None]
  - VOMITING [None]
